FAERS Safety Report 23541192 (Version 2)
Quarter: 2024Q2

REPORT INFORMATION
  Report Type: Spontaneous
  Country: US (occurrence: US)
  Receive Date: 20240219
  Receipt Date: 20240612
  Transmission Date: 20240716
  Serious: No
  Sender: FDA-Public Use
  Company Number: US-BRISTOL-MYERS SQUIBB COMPANY-2024-026765

PATIENT
  Age: 73 Year
  Sex: Male

DRUGS (2)
  1. POMALYST [Suspect]
     Active Substance: POMALIDOMIDE
     Indication: Plasma cell myeloma
     Route: 048
     Dates: start: 20190626
  2. POMALYST [Suspect]
     Active Substance: POMALIDOMIDE
     Route: 048
     Dates: start: 20190626

REACTIONS (5)
  - Urinary tract infection [Unknown]
  - Nasopharyngitis [Unknown]
  - Cough [Unknown]
  - Pyrexia [Unknown]
  - Chest discomfort [Unknown]

NARRATIVE: CASE EVENT DATE: 20240201
